FAERS Safety Report 6490612-6 (Version None)
Quarter: 2009Q4

REPORT INFORMATION
  Report Type: 
  Country: None (occurrence: None)
  Receive Date: 20091124
  Receipt Date: 20090622
  Transmission Date: 20100525
  Serious: Yes (Life-Threatening)
  Sender: FDA-Public Use
  Company Number: 285449

PATIENT
  Sex: Female

DRUGS (2)
  1. HERCEPTIN [Suspect]
     Indication: BREAST CANCER
     Dates: end: 20090622
  2. TAXOTERE [Suspect]
     Indication: BREAST CANCER
     Dates: end: 20090622

REACTIONS (3)
  - BLOOD CREATININE INCREASED [None]
  - INTERSTITIAL LUNG DISEASE [None]
  - TRANSAMINASES INCREASED [None]
